FAERS Safety Report 9423880 (Version 1)
Quarter: 2013Q3

REPORT INFORMATION
  Report Type: Spontaneous
  Country: US (occurrence: US)
  Receive Date: 20130729
  Receipt Date: 20130729
  Transmission Date: 20140515
  Serious: No
  Sender: FDA-Public Use
  Company Number: US-009507513-1307USA005592

PATIENT
  Sex: Male

DRUGS (1)
  1. DULERA [Suspect]
     Dosage: 2 PUFFS, A DAY
     Route: 055
     Dates: start: 20130620

REACTIONS (2)
  - Accidental exposure to product [Unknown]
  - Product quality issue [Unknown]
